FAERS Safety Report 9863121 (Version 1)
Quarter: 2014Q1

REPORT INFORMATION
  Report Type: Spontaneous
  Country: US (occurrence: US)
  Receive Date: 20140203
  Receipt Date: 20140203
  Transmission Date: 20141002
  Serious: Yes (Hospitalization)
  Sender: FDA-Public Use
  Company Number: US-BAYER-2014-014782

PATIENT
  Age: 70 Year
  Sex: Male
  Weight: 167.8 kg

DRUGS (12)
  1. ALEVE CAPLET [Suspect]
     Indication: BACK PAIN
     Dosage: 2 DF, BID
     Route: 048
     Dates: start: 20131209, end: 201401
  2. BAYER ASPIRIN REGIMEN ADULT LOW STRENGTH [Suspect]
     Indication: ISCHAEMIC HEART DISEASE PROPHYLAXIS
     Dosage: 1 DF, QD
     Route: 048
     Dates: end: 201401
  3. FISH OIL [Concomitant]
  4. VITAMIN D [Concomitant]
  5. LISINOPRIL [Concomitant]
  6. DIGOXIN [Concomitant]
  7. GLIMEPIRIDE [Concomitant]
  8. CARVEDILOL [Concomitant]
  9. SIMVASTATIN [Concomitant]
  10. METFORMIN [Concomitant]
  11. SENNA [Concomitant]
  12. WARFARIN [Concomitant]

REACTIONS (6)
  - Gastrointestinal haemorrhage [Recovered/Resolved]
  - Haematochezia [Recovered/Resolved]
  - Haemorrhagic anaemia [Recovered/Resolved]
  - Extra dose administered [None]
  - Incorrect drug administration duration [None]
  - Labelled drug-drug interaction medication error [None]
